FAERS Safety Report 22298701 (Version 1)
Quarter: 2023Q2

REPORT INFORMATION
  Report Type: Spontaneous
  Country: EG (occurrence: EG)
  Receive Date: 20230509
  Receipt Date: 20230509
  Transmission Date: 20230721
  Serious: Yes (Other)
  Sender: FDA-Public Use
  Company Number: EG-NOVOPROD-1058420

PATIENT
  Sex: Female
  Weight: 98 kg

DRUGS (6)
  1. ACTRAPID [Suspect]
     Active Substance: INSULIN HUMAN
     Indication: Type 2 diabetes mellitus
     Dosage: 40 IU, QD(20U BEFORE BREAKFAST AND 20 BEFORE LAUNCH
  2. EZAPRIL-CO [Concomitant]
     Indication: Hypertension
     Dosage: 1 TAB MORNING BEFORE BREAKFAST )
     Route: 048
  3. NITROMACK [Concomitant]
     Indication: Coronary artery insufficiency
     Dosage: .25MG ( 1 TAB MORNING AFTER BREAKFAST )
     Route: 048
  4. DIABEND [Concomitant]
     Indication: Type 2 diabetes mellitus
     Dosage: 5/1000MG (1 TAB AFTER EL-SEHOOR)
     Route: 048
  5. TOUJEO [Concomitant]
     Active Substance: INSULIN GLARGINE
     Indication: Type 2 diabetes mellitus
     Dosage: 22 IU, QD(AT 12 AM )
     Route: 048
  6. CINNARIZINE [Concomitant]
     Active Substance: CINNARIZINE
     Indication: Dizziness
     Dosage: UNK (1 TAB MORNING AFTER BREAKFAST)
     Route: 048

REACTIONS (1)
  - Diabetic retinopathy [Recovered/Resolved]

NARRATIVE: CASE EVENT DATE: 20221001
